FAERS Safety Report 6891591-X (Version None)
Quarter: 2010Q3

REPORT INFORMATION
  Report Type: 
  Country: None (occurrence: None)
  Receive Date: 20100731
  Receipt Date: 20070801
  Transmission Date: 20110219
  Serious: No
  Sender: FDA-Public Use
  Company Number: US-PFIZER INC-2007064357

PATIENT
  Sex: Male
  Weight: 114 kg

DRUGS (8)
  1. CAVERJECT [Suspect]
     Indication: ERECTILE DYSFUNCTION
     Dates: start: 20070731
  2. NIFEDIPINE [Concomitant]
  3. ACETYLSALICYLIC ACID SRT [Concomitant]
  4. ENALAPRIL [Concomitant]
  5. HYDROCHLOROTHIAZIDE [Concomitant]
  6. METFORMIN HCL [Concomitant]
  7. INSULIN [Concomitant]
  8. MULTI-VITAMINS [Concomitant]

REACTIONS (2)
  - ERECTILE DYSFUNCTION [None]
  - EXPIRED DRUG ADMINISTERED [None]
